FAERS Safety Report 5629356-9 (Version None)
Quarter: 2008Q1

REPORT INFORMATION
  Report Type: 
  Country: None (occurrence: None)
  Receive Date: 20080218
  Receipt Date: 20080208
  Transmission Date: 20080703
  Serious: Yes (Hospitalization)
  Sender: FDA-Public Use
  Company Number: NL-ELI_LILLY_AND_COMPANY-NL200802001956

PATIENT
  Age: 60 Year
  Sex: Female

DRUGS (3)
  1. ZYPREXA [Suspect]
     Indication: MANIA
     Dosage: 10 MG, UNK
     Route: 048
  2. TEMESTA [Concomitant]
     Indication: MANIA
     Dosage: 2.5 MG, UNK
  3. OXAZEPAM [Concomitant]
     Indication: MANIA
     Dosage: 25 MG, 4/D

REACTIONS (1)
  - RESPIRATORY DEPRESSION [None]
